FAERS Safety Report 19109245 (Version 1)
Quarter: 2021Q2

REPORT INFORMATION
  Report Type: Spontaneous
  Country: DE (occurrence: DE)
  Receive Date: 20210408
  Receipt Date: 20210408
  Transmission Date: 20210717
  Serious: Yes (Other)
  Sender: FDA-Public Use
  Company Number: DE-MYLANLABS-2021M1020997

PATIENT

DRUGS (1)
  1. ATOVAQUONE/PROGUANIL [Suspect]
     Active Substance: ATOVAQUONE\PROGUANIL
     Indication: MALARIA PROPHYLAXIS
     Dosage: UNK

REACTIONS (1)
  - Renal impairment [Unknown]
